FAERS Safety Report 26011718 (Version 2)
Quarter: 2025Q4

REPORT INFORMATION
  Report Type: Spontaneous
  Country: US (occurrence: US)
  Receive Date: 20251107
  Receipt Date: 20251208
  Transmission Date: 20260119
  Serious: No
  Sender: GLAUKOS
  Company Number: US-GLK-000695

PATIENT
  Age: 73 Year
  Sex: Female

DRUGS (2)
  1. IDOSE TR [Suspect]
     Active Substance: TRAVOPROST
     Indication: Open angle glaucoma
     Dosage: LEFT EYE
     Route: 047
     Dates: start: 20250929, end: 20250929
  2. Prednisolone drops, Tapering dose [Concomitant]

REACTIONS (5)
  - Anterior chamber cell [Not Recovered/Not Resolved]
  - Drug hypersensitivity [Recovered/Resolved]
  - Medical device removal [Recovered/Resolved]
  - Photophobia [Recovered/Resolved]
  - Ocular hyperaemia [Recovered/Resolved]

NARRATIVE: CASE EVENT DATE: 20251020
